FAERS Safety Report 10775823 (Version 1)
Quarter: 2015Q1

REPORT INFORMATION
  Report Type: Spontaneous
  Country: US (occurrence: None)
  Receive Date: 20150205
  Receipt Date: 20150205
  Transmission Date: 20150721
  Serious: No
  Sender: FDA-Public Use
  Company Number: None

PATIENT
  Age: 58 Year
  Sex: Female
  Weight: 67.13 kg

DRUGS (3)
  1. MUCINEX [Concomitant]
     Active Substance: GUAIFENESIN
  2. SEMPREX-D [Concomitant]
     Active Substance: ACRIVASTINE\PSEUDOEPHEDRINE HYDROCHLORIDE
  3. LEVAQUIN [Suspect]
     Active Substance: LEVOFLOXACIN
     Indication: SINUSITIS
     Dosage: ONE PILL TWICE DAILY TAKEN BY MOUTH
     Route: 048
     Dates: start: 20150106, end: 20150115

REACTIONS (4)
  - Gingival erythema [None]
  - Gingival pain [None]
  - Gingival disorder [None]
  - Myalgia [None]

NARRATIVE: CASE EVENT DATE: 20150121
